FAERS Safety Report 9200508 (Version 2)
Quarter: 2013Q1

REPORT INFORMATION
  Report Type: Spontaneous
  Country: DE (occurrence: DE)
  Receive Date: 20130329
  Receipt Date: 20130329
  Transmission Date: 20140127
  Serious: Yes (Death, Other)
  Sender: FDA-Public Use
  Company Number: DE-PFIZER INC-2009276555

PATIENT
  Age: 71 Year
  Sex: Male

DRUGS (3)
  1. MOTRIN IB [Suspect]
     Indication: OSTEOARTHRITIS
     Dosage: 600 MILLIGRAM, QD
     Route: 048
  2. MOTRIN IB [Interacting]
     Indication: ARTHRALGIA
  3. GINGIUM [Interacting]
     Indication: DIZZINESS
     Dosage: 40 MG, BID
     Route: 065

REACTIONS (5)
  - Cerebral haemorrhage [Fatal]
  - Death [Fatal]
  - Drug interaction [Unknown]
  - Coma [Unknown]
  - Dizziness [None]
